FAERS Safety Report 23141715 (Version 3)
Quarter: 2023Q4

REPORT INFORMATION
  Report Type: Spontaneous
  Country: PT (occurrence: None)
  Receive Date: 20231103
  Receipt Date: 20231123
  Transmission Date: 20240110
  Serious: Yes (Other)
  Sender: FDA-Public Use
  Company Number: 2023A225405

PATIENT
  Age: 73 Year
  Sex: Male

DRUGS (4)
  1. GOSERELIN [Suspect]
     Active Substance: GOSERELIN
     Indication: Breast cancer metastatic
  2. FULVESTRANT [Suspect]
     Active Substance: FULVESTRANT
     Indication: Breast cancer metastatic
  3. PALBOCICLIB [Suspect]
     Active Substance: PALBOCICLIB
     Indication: Breast cancer metastatic
  4. XGEVA [Concomitant]
     Active Substance: DENOSUMAB
     Indication: Metastases to bone

REACTIONS (4)
  - Malignant neoplasm progression [Unknown]
  - Metastases to bone [Unknown]
  - PIK3CA-activated mutation [Unknown]
  - Metastases to liver [Unknown]

NARRATIVE: CASE EVENT DATE: 20140401
